FAERS Safety Report 25046825 (Version 1)
Quarter: 2025Q1

REPORT INFORMATION
  Report Type: Spontaneous
  Country: US (occurrence: US)
  Receive Date: 20250306
  Receipt Date: 20250306
  Transmission Date: 20250409
  Serious: No
  Sender: BRECKENRIDGE PHARMACEUTICAL, INC.
  Company Number: US-Breckenridge Pharmaceutical, Inc.-2172394

PATIENT
  Age: 79 Year
  Sex: Male
  Weight: 121.36 kg

DRUGS (1)
  1. RIVASTIGMINE TRANSDERMAL SYSTEM [Suspect]
     Active Substance: RIVASTIGMINE

REACTIONS (4)
  - Product adhesion issue [Unknown]
  - Product use issue [Unknown]
  - Application site pruritus [Unknown]
  - Application site erythema [Unknown]
